FAERS Safety Report 14897337 (Version 1)
Quarter: 2018Q2

REPORT INFORMATION
  Report Type: Spontaneous
  Country: US (occurrence: US)
  Receive Date: 20180427
  Receipt Date: 20180427
  Transmission Date: 20180711
  Serious: Yes (Other)
  Sender: FDA-Public Use
  Company Number: None

PATIENT
  Age: 69 Year
  Sex: Male
  Weight: 63 kg

DRUGS (5)
  1. PREDNISONE. [Concomitant]
     Active Substance: PREDNISONE
  2. ZYTIGA [Suspect]
     Active Substance: ABIRATERONE ACETATE
     Indication: PROSTATE CANCER
     Route: 048
     Dates: start: 20171010
  3. VITAMIN C [Concomitant]
     Active Substance: ASCORBIC ACID
  4. NITROSTAT [Concomitant]
     Active Substance: NITROGLYCERIN
  5. CASODEX [Concomitant]
     Active Substance: BICALUTAMIDE

REACTIONS (1)
  - Liver function test abnormal [None]
